FAERS Safety Report 11156628 (Version 1)
Quarter: 2015Q2

REPORT INFORMATION
  Report Type: Spontaneous
  Country: PL (occurrence: PL)
  Receive Date: 20150602
  Receipt Date: 20150602
  Transmission Date: 20150821
  Serious: Yes (Life-Threatening)
  Sender: FDA-Public Use
  Company Number: PL-TEVA-566583ISR

PATIENT
  Age: 63 Year
  Sex: Male
  Weight: 85 kg

DRUGS (1)
  1. CISPLATIN TEVA [Suspect]
     Active Substance: CISPLATIN
     Indication: NEOPLASM MALIGNANT
     Route: 042
     Dates: start: 20130509

REACTIONS (5)
  - Erythema [Recovered/Resolved]
  - Hypersensitivity [Recovered/Resolved]
  - Anxiety [Recovered/Resolved]
  - Dyspnoea [Recovered/Resolved]
  - Rales [Recovered/Resolved]

NARRATIVE: CASE EVENT DATE: 20130509
